FAERS Safety Report 4526269-0 (Version None)
Quarter: 2004Q4

REPORT INFORMATION
  Report Type: 
  Country: None (occurrence: None)
  Receive Date: 20041201
  Receipt Date: 20040805
  Transmission Date: 20050328
  Serious: No
  Sender: FDA-Public Use
  Company Number: MPS1-10229

PATIENT
  Age: 15 Year
  Sex: Female
  Weight: 20 kg

DRUGS (1)
  1. ALDURAZYME [Suspect]
     Indication: MUCOPOLYSACCHARIDOSIS I
     Dosage: 11.6 MG QWK  IV
     Route: 042
     Dates: start: 20040318

REACTIONS (2)
  - VIRAL INFECTION [None]
  - WEIGHT DECREASED [None]
